FAERS Safety Report 5608645-8 (Version None)
Quarter: 2008Q1

REPORT INFORMATION
  Report Type: 
  Country: None (occurrence: None)
  Receive Date: 20080130
  Receipt Date: 20080122
  Transmission Date: 20080703
  Serious: Yes (Disabling)
  Sender: FDA-Public Use
  Company Number: US-PFIZER INC-2008006778

PATIENT
  Sex: Female
  Weight: 61.818 kg

DRUGS (5)
  1. SOLU-CORTEF [Suspect]
     Indication: SECONDARY ADRENOCORTICAL INSUFFICIENCY
     Route: 042
     Dates: start: 19961221, end: 19961222
  2. CORTEF [Suspect]
     Indication: SECONDARY ADRENOCORTICAL INSUFFICIENCY
     Dosage: DAILY DOSE:15MG
  3. NEXIUM [Concomitant]
     Route: 048
  4. AVIANE-21 [Concomitant]
     Route: 048
  5. SPIRONOLACTONE W/ HYDROCHLOROTHIAZIDE [Concomitant]
     Dosage: TEXT:25/25
     Route: 048

REACTIONS (1)
  - DISABILITY [None]
